FAERS Safety Report 6976210-6 (Version None)
Quarter: 2010Q3

REPORT INFORMATION
  Report Type: 
  Country: None (occurrence: None)
  Receive Date: 20100910
  Receipt Date: 20090421
  Transmission Date: 20110219
  Serious: No
  Sender: FDA-Public Use
  Company Number: US-WYE-H09096309

PATIENT
  Sex: Female

DRUGS (2)
  1. PRISTIQ [Suspect]
     Indication: DEPRESSION
     Dosage: 50 MG, FREQUENCY NOT SPECIFIED
     Route: 048
  2. TOPAMAX [Concomitant]

REACTIONS (1)
  - NEPHROLITHIASIS [None]
